FAERS Safety Report 9851061 (Version 1)
Quarter: 2014Q1

REPORT INFORMATION
  Report Type: Spontaneous
  Country: US (occurrence: US)
  Receive Date: 20140128
  Receipt Date: 20140128
  Transmission Date: 20141002
  Serious: No
  Sender: FDA-Public Use
  Company Number: US-DYAX CORP.-2013DX000009

PATIENT
  Age: 45 Year
  Sex: Female
  Weight: 90.8 kg

DRUGS (3)
  1. KALBITOR [Suspect]
     Indication: HEREDITARY ANGIOEDEMA
     Route: 058
     Dates: start: 20121226, end: 20121226
  2. KALBITOR [Suspect]
     Route: 058
     Dates: start: 20130101, end: 20130101
  3. CINRYZE [Concomitant]
     Indication: HEREDITARY ANGIOEDEMA
     Route: 042

REACTIONS (2)
  - Pain [Recovered/Resolved]
  - Hereditary angioedema [Recovered/Resolved]
